FAERS Safety Report 6274968-5 (Version None)
Quarter: 2009Q3

REPORT INFORMATION
  Report Type: 
  Country: None (occurrence: None)
  Receive Date: 20090717
  Receipt Date: 20090706
  Transmission Date: 20100115
  Serious: Yes (Other)
  Sender: FDA-Public Use
  Company Number: PAR_03056_2009

PATIENT
  Age: 75 Year
  Sex: Male

DRUGS (9)
  1. CAPTOPRIL [Suspect]
     Indication: HYPERTENSION
     Dosage: (DF ORAL)
     Route: 048
  2. IMIPENEM (IMIPENEM) [Suspect]
     Indication: DRUG USE FOR UNKNOWN INDICATION
     Dosage: (DF INTRAVENOUS (NOT OTHERWISE SPECIFIED))
     Route: 042
  3. UNSPECIFIED MEDICATIONS [Concomitant]
  4. INDAPAMIDE [Concomitant]
  5. VALSARTAN [Concomitant]
  6. ACETAMINOPHEN [Concomitant]
  7. METHYLPREDNISOLONE [Concomitant]
  8. PANTOPRAZOLE SODIUM [Concomitant]
  9. FRAZIPARINE /01437701/ [Concomitant]

REACTIONS (1)
  - LINEAR IGA DISEASE [None]
